FAERS Safety Report 15578346 (Version 1)
Quarter: 2018Q4

REPORT INFORMATION
  Report Type: Spontaneous
  Country: FR (occurrence: FR)
  Receive Date: 20181102
  Receipt Date: 20181102
  Transmission Date: 20190205
  Serious: Yes (Other)
  Sender: FDA-Public Use
  Company Number: FR-ROCHE-2207668

PATIENT
  Age: 49 Year
  Sex: Male

DRUGS (1)
  1. RITUXIMAB. [Suspect]
     Active Substance: RITUXIMAB
     Indication: NEUROMYELITIS OPTICA SPECTRUM DISORDER
     Dosage: TWO DOSES OF 1 G RITUXIMAB SEPARATED BY 15 DAYS?EVERY 6 MONTHS AS ONE CYCLE
     Route: 042
     Dates: start: 201603

REACTIONS (2)
  - Neutropenia [Recovered/Resolved]
  - Optic neuritis [Unknown]

NARRATIVE: CASE EVENT DATE: 201701
